FAERS Safety Report 4610208-8 (Version None)
Quarter: 2005Q1

REPORT INFORMATION
  Report Type: 
  Country: None (occurrence: None)
  Receive Date: 20050315
  Receipt Date: 20050301
  Transmission Date: 20050727
  Serious: Yes (Other)
  Sender: FDA-Public Use
  Company Number: 2005038450

PATIENT
  Sex: Female
  Weight: 61.6892 kg

DRUGS (3)
  1. VISINE TEARS (GLYCERIN, POLYETHYLENE GLYCOL, HYDROXYPROPYLMETHYLCELLUL [Suspect]
     Indication: DRY EYE
     Dosage: 1 DROP, EACH EYE, TWICE DAILY, OPHTHALMIC
     Route: 047
     Dates: start: 19990101
  2. VALSARTAN [Concomitant]
  3. ATENOLOL [Concomitant]

REACTIONS (1)
  - CATARACT [None]
